FAERS Safety Report 6634289-5 (Version None)
Quarter: 2010Q1

REPORT INFORMATION
  Report Type: 
  Country: None (occurrence: None)
  Receive Date: 20100312
  Receipt Date: 20100312
  Transmission Date: 20100710
  Serious: Yes (Life-Threatening, Hospitalization, Disabling, Other)
  Sender: FDA-Public Use
  Company Number: None

PATIENT
  Age: 18 Year
  Sex: Male
  Weight: 68.0396 kg

DRUGS (1)
  1. ZYPREXA [Suspect]
     Indication: MENTAL DISORDER
     Dosage: 5, 10 MG DAILY; 15 MG DAILY
     Dates: start: 20081001, end: 20090801

REACTIONS (2)
  - PANCREATIC DISORDER [None]
  - TYPE 1 DIABETES MELLITUS [None]
